FAERS Safety Report 23716327 (Version 1)
Quarter: 2024Q2

REPORT INFORMATION
  Report Type: Spontaneous
  Country: US (occurrence: US)
  Receive Date: 20240408
  Receipt Date: 20240408
  Transmission Date: 20240716
  Serious: No
  Sender: FDA-Public Use
  Company Number: US-UCBSA-2023017699

PATIENT
  Sex: Male

DRUGS (2)
  1. BRIVIACT [Suspect]
     Active Substance: BRIVARACETAM
     Indication: Epilepsy
     Dosage: 2 DOSAGE FORM
     Dates: start: 20201216
  2. BRIVIACT [Suspect]
     Active Substance: BRIVARACETAM
     Dosage: UNK
     Dates: start: 202102

REACTIONS (3)
  - Morbid thoughts [Unknown]
  - Panic attack [Unknown]
  - Therapeutic response shortened [Unknown]
